FAERS Safety Report 4736190-0 (Version None)
Quarter: 2005Q3

REPORT INFORMATION
  Report Type: 
  Country: None (occurrence: None)
  Receive Date: 20050806
  Receipt Date: 20050603
  Transmission Date: 20060218
  Serious: Yes (Other)
  Sender: FDA-Public Use
  Company Number: PHHO2005CA08960

PATIENT
  Sex: Female

DRUGS (1)
  1. ZELNORM [Suspect]
     Dosage: UNK, UNK

REACTIONS (4)
  - CHOLECYSTECTOMY [None]
  - GALLBLADDER DISORDER [None]
  - POSTOPERATIVE WOUND COMPLICATION [None]
  - WEIGHT DECREASED [None]
